FAERS Safety Report 24223966 (Version 2)
Quarter: 2024Q3

REPORT INFORMATION
  Report Type: Spontaneous
  Country: IR (occurrence: IR)
  Receive Date: 20240819
  Receipt Date: 20240828
  Transmission Date: 20241016
  Serious: Yes (Death, Hospitalization)
  Sender: SANOFI AVENTIS
  Company Number: IR-SA-2024SA244720

PATIENT
  Age: 4 Month
  Sex: Female
  Weight: 4.5 kg

DRUGS (1)
  1. MYOZYME [Suspect]
     Active Substance: ALGLUCOSIDASE ALFA
     Indication: Glycogen storage disease type II
     Dosage: 7 DF
     Dates: start: 202406

REACTIONS (2)
  - Cardiac disorder [Fatal]
  - Respiratory disorder [Fatal]
